FAERS Safety Report 10257326 (Version 1)
Quarter: 2014Q2

REPORT INFORMATION
  Report Type: Spontaneous
  Country: US (occurrence: None)
  Receive Date: 20140620
  Receipt Date: 20140620
  Transmission Date: 20141212
  Serious: Yes (Other)
  Sender: FDA-Public Use
  Company Number: SYM-2014-22154

PATIENT
  Sex: Female

DRUGS (10)
  1. XENAZINE [Suspect]
     Indication: DYSKINESIA
     Route: 048
     Dates: start: 201306
  2. KLONOPIN (CLONAZEPAM) (CLONAZEPAM) [Concomitant]
  3. REQUIP (ROPINIROLE HYDROCHLORIDE) (ROPINIROLE HYDROCHLORIDE) [Concomitant]
  4. VOLTAREN (DICLOFENAC) (DICLOFENAC) [Concomitant]
  5. SUMATRIPTAN (SUMATRIPTAN) [Concomitant]
  6. TOPIRAMATE (TOPIRAMATE) [Concomitant]
  7. CRESTOR (ROSUVASTATIN CALCIUM) (ROSUVASTATIN CALCIUM) [Concomitant]
  8. ALBUTEROL (SALBUTAMOL) (SALBUTAMOL) [Concomitant]
  9. SAVELLA (MILNACIPRAN HYDROCHLORIDE) (MILNACIPRAN HYDROCHLORIDE) [Concomitant]
  10. AUGMENTIN [Concomitant]

REACTIONS (3)
  - Diarrhoea [None]
  - Eye swelling [None]
  - Clostridium difficile infection [None]
